FAERS Safety Report 4338824-1 (Version None)
Quarter: 2004Q2

REPORT INFORMATION
  Report Type: 
  Country: None (occurrence: None)
  Receive Date: 20040409
  Receipt Date: 20040401
  Transmission Date: 20050107
  Serious: Yes (Other)
  Sender: FDA-Public Use
  Company Number: BE-JNJFOC-20040304608

PATIENT
  Sex: Male

DRUGS (4)
  1. PROPULSID [Suspect]
     Indication: GASTROOESOPHAGEAL REFLUX DISEASE
     Dosage: 2 MG, 4 IN DAY
     Dates: start: 20030220, end: 20040310
  2. CLAFORAN [Concomitant]
  3. IMMUNE GLOBULIN INTRAVENOUS (HUMAN) [Concomitant]
  4. LOSEC (OMEPRAZOLE) [Concomitant]

REACTIONS (4)
  - FUNDOPLICATION [None]
  - HYPOGAMMAGLOBULINAEMIA [None]
  - INFLUENZA [None]
  - PNEUMONIA [None]
